FAERS Safety Report 6438540-6 (Version None)
Quarter: 2009Q4

REPORT INFORMATION
  Report Type: 
  Country: None (occurrence: None)
  Receive Date: 20091110
  Receipt Date: 20091102
  Transmission Date: 20100525
  Serious: Yes (Hospitalization)
  Sender: FDA-Public Use
  Company Number: 002310

PATIENT
  Sex: Male

DRUGS (1)
  1. NEUPRO [Suspect]
     Indication: PARKINSON'S DISEASE
     Dosage: (TRANSDERMAL), (8 MG QD TRANSDERMAL)
     Route: 062
     Dates: start: 20091001

REACTIONS (1)
  - HYPERTENSIVE CRISIS [None]
